FAERS Safety Report 7840956-8 (Version None)
Quarter: 2011Q4

REPORT INFORMATION
  Report Type: 
  Country: None (occurrence: None)
  Receive Date: 20111021
  Receipt Date: 20111021
  Transmission Date: 20120403
  Serious: Yes (Other)
  Sender: FDA-Public Use
  Company Number: None

PATIENT
  Sex: Female
  Weight: 62.5964 kg

DRUGS (1)
  1. PROPAFENONE HCL [Suspect]
     Indication: ATRIAL FIBRILLATION
     Dosage: 225 EVERY 12 HRS MOUTH
     Route: 048
     Dates: start: 20110919, end: 20110923

REACTIONS (11)
  - DIZZINESS [None]
  - FALL [None]
  - OCULAR HYPERAEMIA [None]
  - INTERNATIONAL NORMALISED RATIO INCREASED [None]
  - VISION BLURRED [None]
  - GAIT DISTURBANCE [None]
  - BALANCE DISORDER [None]
  - HEADACHE [None]
  - TREMOR [None]
  - DYSGEUSIA [None]
  - DIPLOPIA [None]
